FAERS Safety Report 17319771 (Version 1)
Quarter: 2020Q1

REPORT INFORMATION
  Report Type: Spontaneous
  Country: DE (occurrence: DE)
  Receive Date: 20200125
  Receipt Date: 20200125
  Transmission Date: 20200409
  Serious: Yes (Death, Other)
  Sender: FDA-Public Use
  Company Number: NVSC2020DE018595

PATIENT
  Age: 56 Year

DRUGS (10)
  1. CISPLATIN. [Suspect]
     Active Substance: CISPLATIN
     Dosage: 5 CYCLES, SECOND-LINE THERAPY
     Route: 065
  2. GEMCITABINE. [Suspect]
     Active Substance: GEMCITABINE
     Indication: NEOPLASM MALIGNANT
     Dosage: UNK
     Route: 065
  3. NINTEDANIB [Suspect]
     Active Substance: NINTEDANIB
     Indication: NEOPLASM MALIGNANT
     Dosage: 5 CYCLES
     Route: 065
     Dates: start: 20171009, end: 20180321
  4. PEMETREXED DISODIUM [Suspect]
     Active Substance: PEMETREXED DISODIUM
     Indication: NEOPLASM MALIGNANT
     Dosage: 5 CYCLES,THEN MAINTAINANCE
     Route: 065
  5. NIVOLUMAB [Suspect]
     Active Substance: NIVOLUMAB
     Indication: NEOPLASM MALIGNANT
     Dosage: UNK
     Route: 065
  6. PEMBROLIZUMAB. [Suspect]
     Active Substance: PEMBROLIZUMAB
     Indication: NEOPLASM MALIGNANT
     Dosage: UNK
     Route: 065
  7. DOCETAXEL. [Suspect]
     Active Substance: DOCETAXEL
     Indication: NEOPLASM MALIGNANT
     Dosage: 5 CYCLES
     Route: 065
     Dates: start: 20171009, end: 20180321
  8. CISPLATIN. [Suspect]
     Active Substance: CISPLATIN
     Indication: NEOPLASM MALIGNANT
     Dosage: UNK
     Route: 065
     Dates: start: 20171009, end: 20180321
  9. VINORELBINE DITARTRATE [Suspect]
     Active Substance: VINORELBINE TARTRATE
     Indication: NEOPLASM MALIGNANT
     Dosage: UNK
     Route: 065
     Dates: start: 20171009, end: 20180321
  10. PACLITAXEL. [Suspect]
     Active Substance: PACLITAXEL
     Indication: NEOPLASM MALIGNANT
     Dosage: UNK
     Route: 065
     Dates: start: 20171009, end: 20180321

REACTIONS (3)
  - Death [Fatal]
  - Rash [Fatal]
  - Malignant neoplasm progression [Fatal]

NARRATIVE: CASE EVENT DATE: 20180321
